FAERS Safety Report 15562409 (Version 5)
Quarter: 2020Q2

REPORT INFORMATION
  Report Type: Report from Study
  Country: TW (occurrence: TW)
  Receive Date: 20181029
  Receipt Date: 20200626
  Transmission Date: 20200713
  Serious: Yes (Hospitalization, Other)
  Sender: FDA-Public Use
  Company Number: TW-TAKEDA-2018TUS030721

PATIENT
  Age: 30 Year
  Sex: Male

DRUGS (2)
  1. VEDOLIZUMAB [Suspect]
     Active Substance: VEDOLIZUMAB
     Indication: CROHN^S DISEASE
     Dosage: UNK
     Route: 042
     Dates: start: 20171218
  2. VEDOLIZUMAB [Suspect]
     Active Substance: VEDOLIZUMAB
     Dosage: UNK UNK, Q4WEEKS
     Route: 042
     Dates: start: 20180829

REACTIONS (10)
  - Crohn^s disease [Unknown]
  - Off label use [Unknown]
  - Pyrexia [Not Recovered/Not Resolved]
  - Ileal stenosis [Recovering/Resolving]
  - Abdominal pain [Not Recovered/Not Resolved]
  - Headache [Unknown]
  - Infection [Unknown]
  - Back pain [Unknown]
  - Abscess [Unknown]
  - Blood urine present [Unknown]

NARRATIVE: CASE EVENT DATE: 20180829
